FAERS Safety Report 7386703-8 (Version None)
Quarter: 2011Q1

REPORT INFORMATION
  Report Type: 
  Country: None (occurrence: None)
  Receive Date: 20110331
  Receipt Date: 20110328
  Transmission Date: 20110831
  Serious: Yes (Other)
  Sender: FDA-Public Use
  Company Number: US-PFIZER INC-2011069949

PATIENT
  Sex: Male

DRUGS (2)
  1. GEODON [Suspect]
     Dosage: 240 MG
     Dates: start: 20101101
  2. GEODON [Suspect]
     Indication: BIPOLAR DISORDER
     Dosage: 160 MG, 1X/DAY
     Dates: start: 20090701

REACTIONS (3)
  - PSYCHOTIC DISORDER [None]
  - PANIC ATTACK [None]
  - HALLUCINATION [None]
